FAERS Safety Report 9845407 (Version 1)
Quarter: 2014Q1

REPORT INFORMATION
  Report Type: Spontaneous
  Country: US (occurrence: None)
  Receive Date: 20140123
  Receipt Date: 20140123
  Transmission Date: 20141002
  Serious: Yes (Hospitalization)
  Sender: FDA-Public Use
  Company Number: KAD201401-000050

PATIENT
  Age: 58 Year
  Sex: Female
  Weight: 77.6 kg

DRUGS (21)
  1. RIBAVIRIN [Suspect]
     Route: 048
     Dates: start: 20131021, end: 20131107
  2. SOFOSBUVIR/LEDIPASVIR [Suspect]
     Route: 048
     Dates: start: 20131021
  3. RANITIDINE [Concomitant]
  4. DOCUSATE SODIUM (DOCUSATE SODIUM) [Concomitant]
  5. NIFEDIPINE (NIFEDIPINE) (NIFEDIPINE) [Concomitant]
  6. LISINOPRIL (LISINOPRIL) [Concomitant]
  7. CLONIDINE (CLONIDINE) [Concomitant]
  8. PLAVIX (CLOPIDOGREL) [Concomitant]
  9. FLUOXETINE (FLUOXETINE) [Concomitant]
  10. ATORVASTATIN (ATORVASTATIN) [Concomitant]
  11. LISINOPRIL/HCTZ (LISINOPRIL, HYDROCHLOROTHIAZIDE) [Concomitant]
  12. OXYCODONE (OXYCODONE) [Concomitant]
  13. ENTECAVIR (ENTECAVIR) [Concomitant]
  14. VALTREX (VALACICLOVIR) [Concomitant]
  15. METOPROLOL (METOPROLOL) [Concomitant]
  16. LANTUS (INSULIN GLARGINE) [Concomitant]
  17. OVOLOG (INSULIN ASPART) [Concomitant]
  18. SYNTHROID (LEVOTHYROXINE SODIUM) [Concomitant]
  19. BACTRIM (SULFAMETHOXAZOLE, TRIMETHOPRIM) [Concomitant]
  20. PREDNISONE (PREDNISONE) [Concomitant]
  21. TACROLIMUS (TACROLIMUS) [Concomitant]

REACTIONS (2)
  - Anaemia [None]
  - Renal failure acute [None]
